FAERS Safety Report 7125186-X (Version None)
Quarter: 2010Q4

REPORT INFORMATION
  Report Type: 
  Country: None (occurrence: None)
  Receive Date: 20101129
  Receipt Date: 20101117
  Transmission Date: 20110411
  Serious: Yes (Other)
  Sender: FDA-Public Use
  Company Number: PHHY2010US78286

PATIENT
  Sex: Male

DRUGS (3)
  1. VALTURNA [Suspect]
     Dosage: 150 MG
     Dates: start: 20101010
  2. VALTURNA [Suspect]
     Dosage: 300 MG
  3. VITAMIN D [Suspect]

REACTIONS (3)
  - KNEE DEFORMITY [None]
  - ORAL PAIN [None]
  - PARALYSIS [None]
